FAERS Safety Report 6781444-X (Version None)
Quarter: 2010Q2

REPORT INFORMATION
  Report Type: 
  Country: None (occurrence: None)
  Receive Date: 20100615
  Receipt Date: 20100601
  Transmission Date: 20101027
  Serious: Yes (Other)
  Sender: FDA-Public Use
  Company Number: 2010SCPR001151

PATIENT
  Age: 20 Year
  Sex: Male
  Weight: 45 kg

DRUGS (1)
  1. TRAMADOL HCL [Suspect]
     Indication: PAIN
     Dosage: 50 MG, SINGLE, INTRAVENOUS
     Route: 042

REACTIONS (5)
  - APNOEA [None]
  - OPERATIVE HAEMORRHAGE [None]
  - OXYGEN SATURATION DECREASED [None]
  - PAIN [None]
  - UNRESPONSIVE TO STIMULI [None]
